FAERS Safety Report 4456004-6 (Version None)
Quarter: 2004Q3

REPORT INFORMATION
  Report Type: 
  Country: None (occurrence: None)
  Receive Date: 20040922
  Receipt Date: 20040914
  Transmission Date: 20050211
  Serious: Yes (Hospitalization)
  Sender: FDA-Public Use
  Company Number: AU-BRISTOL-MYERS SQUIBB COMPANY-12700803

PATIENT
  Sex: Male

DRUGS (1)
  1. AVAPRO [Suspect]
     Dates: start: 20010101, end: 20010101

REACTIONS (1)
  - ASTHMA [None]
